FAERS Safety Report 18326186 (Version 12)
Quarter: 2025Q1

REPORT INFORMATION
  Report Type: Report from Study
  Country: AT (occurrence: AT)
  Receive Date: 20200929
  Receipt Date: 20250314
  Transmission Date: 20250408
  Serious: Yes (Hospitalization, Other)
  Sender: BIOCON
  Company Number: AT-ROCHE-2215193

PATIENT

DRUGS (186)
  1. TRASTUZUMAB [Suspect]
     Active Substance: TRASTUZUMAB
     Indication: Breast cancer metastatic
     Dosage: 624 MILLIGRAM, QD624 MG, QD,
     Route: 042
     Dates: start: 20170224, end: 20170224
  2. TRASTUZUMAB [Suspect]
     Active Substance: TRASTUZUMAB
     Dosage: 624 MG, QD(MOST RECENT DOSE)
     Route: 042
     Dates: end: 20170810
  3. TRASTUZUMAB [Suspect]
     Active Substance: TRASTUZUMAB
     Route: 042
     Dates: start: 20170609, end: 20170630
  4. TRASTUZUMAB [Suspect]
     Active Substance: TRASTUZUMAB
     Route: 042
     Dates: start: 20170410, end: 20170427
  5. TRASTUZUMAB [Suspect]
     Active Substance: TRASTUZUMAB
     Route: 042
     Dates: start: 20170810, end: 20190213
  6. TRASTUZUMAB [Suspect]
     Active Substance: TRASTUZUMAB
     Route: 042
     Dates: start: 20210317, end: 20210428
  7. TRASTUZUMAB [Suspect]
     Active Substance: TRASTUZUMAB
     Route: 042
     Dates: start: 20170519, end: 20170519
  8. TRASTUZUMAB [Suspect]
     Active Substance: TRASTUZUMAB
     Route: 042
     Dates: start: 20170720, end: 20170720
  9. TRASTUZUMAB [Suspect]
     Active Substance: TRASTUZUMAB
     Route: 042
     Dates: start: 20200422, end: 20200615
  10. TRASTUZUMAB [Suspect]
     Active Substance: TRASTUZUMAB
     Route: 042
     Dates: start: 20201230, end: 20210210
  11. TRASTUZUMAB [Suspect]
     Active Substance: TRASTUZUMAB
     Route: 042
     Dates: start: 20170609, end: 20170630
  12. TRASTUZUMAB [Suspect]
     Active Substance: TRASTUZUMAB
     Route: 042
     Dates: start: 20170810, end: 20190213
  13. TRASTUZUMAB [Suspect]
     Active Substance: TRASTUZUMAB
     Route: 042
     Dates: start: 20200422, end: 20200615
  14. TRASTUZUMAB [Suspect]
     Active Substance: TRASTUZUMAB
     Route: 042
     Dates: start: 20201230, end: 20210210
  15. FULVESTRANT [Suspect]
     Active Substance: FULVESTRANT
     Indication: Breast cancer
     Route: 030
     Dates: start: 20171002, end: 20171115
  16. FULVESTRANT [Suspect]
     Active Substance: FULVESTRANT
     Indication: Breast cancer metastatic
     Dosage: 500 MILLIGRAM, QMONTH
     Route: 030
     Dates: start: 20171116, end: 20191001
  17. XELODA [Suspect]
     Active Substance: CAPECITABINE
     Indication: Breast cancer
     Dosage: 3500MG, QD (MOST RECENT DOSE)
     Route: 048
     Dates: start: 20191002, end: 20200107
  18. XELODA [Suspect]
     Active Substance: CAPECITABINE
     Indication: Breast cancer metastatic
     Dosage: 2000 MILLIGRAM, QD DAILY FOR 2 WEEKS THEN PAUSE FOR 1 WEEK
     Route: 048
     Dates: start: 20201230, end: 20210203
  19. XELODA [Suspect]
     Active Substance: CAPECITABINE
     Indication: Breast cancer metastatic
     Dosage: 3500 MILLIGRAM, QD
     Route: 048
     Dates: start: 20210210, end: 20210224
  20. XELODA [Suspect]
     Active Substance: CAPECITABINE
     Dosage: 3000 MILLIGRAM, QD
     Route: 048
     Dates: start: 20200108, end: 20200421
  21. VINORELBINE [Suspect]
     Active Substance: VINORELBINE TARTRATE
     Indication: Breast cancer
     Dosage: 45 MILLIGRAM, Q3W
     Route: 042
     Dates: start: 20200422
  22. VINORELBINE [Suspect]
     Active Substance: VINORELBINE TARTRATE
     Indication: Breast cancer metastatic
  23. LAPATINIB [Suspect]
     Active Substance: LAPATINIB
     Indication: Breast cancer
     Dosage: 1250 MG, QD
     Route: 048
     Dates: start: 20191002, end: 20200107
  24. LAPATINIB [Suspect]
     Active Substance: LAPATINIB
     Indication: Breast cancer metastatic
  25. PERTUZUMAB [Suspect]
     Active Substance: PERTUZUMAB
     Indication: Breast cancer metastatic
     Dosage: 840 MG, QD
     Route: 042
     Dates: start: 20170224, end: 20170224
  26. PERTUZUMAB [Suspect]
     Active Substance: PERTUZUMAB
     Dosage: 840 MILLIGRAM, QD
     Route: 042
     Dates: end: 20170317
  27. PERTUZUMAB [Suspect]
     Active Substance: PERTUZUMAB
     Dosage: 420 MG, QD
     Route: 042
     Dates: start: 20170317, end: 20190213
  28. PERTUZUMAB [Suspect]
     Active Substance: PERTUZUMAB
     Dosage: 840 MG, QD
     Route: 042
     Dates: start: 20200422, end: 20200615
  29. PERTUZUMAB [Suspect]
     Active Substance: PERTUZUMAB
     Dosage: 840 MG, QD
     Route: 042
     Dates: start: 20210317, end: 20210428
  30. ADO-TRASTUZUMAB EMTANSINE [Suspect]
     Active Substance: ADO-TRASTUZUMAB EMTANSINE
     Indication: Breast cancer
     Dosage: 270 MILLIGRAM, Q3W
     Route: 042
     Dates: start: 20190306, end: 20190909
  31. ADO-TRASTUZUMAB EMTANSINE [Suspect]
     Active Substance: ADO-TRASTUZUMAB EMTANSINE
     Indication: Breast cancer metastatic
  32. DOCETAXEL [Suspect]
     Active Substance: DOCETAXEL
     Indication: Breast cancer metastatic
     Dosage: 190 MG, Q3W, MOST RECENT DOS
     Route: 042
     Dates: start: 20170224, end: 20170317
  33. DOCETAXEL [Suspect]
     Active Substance: DOCETAXEL
     Dosage: 190 MG, Q3W(MOST RECENT DOSE PRIOR)
     Route: 042
     Dates: end: 20170609
  34. ACETAMINOPHEN [Suspect]
     Active Substance: ACETAMINOPHEN
     Indication: Pseudomonal sepsis
     Route: 065
     Dates: start: 20200506, end: 20201215
  35. PEGFILGRASTIM [Suspect]
     Active Substance: PEGFILGRASTIM
     Indication: Product used for unknown indication
     Route: 065
     Dates: start: 20210610, end: 20210610
  36. TYKERB [Suspect]
     Active Substance: LAPATINIB DITOSYLATE
     Indication: Breast cancer metastatic
     Dosage: 100 MG, QD
     Route: 065
     Dates: start: 20200108, end: 20200421
  37. TYKERB [Suspect]
     Active Substance: LAPATINIB DITOSYLATE
     Indication: HER2 positive breast cancer
     Dosage: 1000 MG, QD
     Route: 048
     Dates: start: 20200108, end: 20200421
  38. TYKERB [Suspect]
     Active Substance: LAPATINIB DITOSYLATE
     Indication: Breast cancer
     Dosage: 1250 MG, QD
     Route: 048
     Dates: start: 20191002, end: 20200107
  39. XGEVA [Suspect]
     Active Substance: DENOSUMAB
     Indication: Breast cancer metastatic
     Route: 042
     Dates: start: 20201230, end: 20210210
  40. XGEVA [Suspect]
     Active Substance: DENOSUMAB
     Route: 065
     Dates: start: 20170202, end: 20210521
  41. CAPECITABINE [Suspect]
     Active Substance: CAPECITABINE
     Indication: Breast cancer
     Dosage: 300 MG, QD
     Route: 065
     Dates: start: 20200108
  42. CAPECITABINE [Suspect]
     Active Substance: CAPECITABINE
     Indication: HER2 positive breast cancer
     Dosage: 3500 MG, QD (MOST RECENT DOSE PRIOR TO THE EVENT LYMPH NODE METASTATIS AXILLA AND PORT A CATH INFECT
     Route: 048
     Dates: start: 20191002, end: 20200107
  43. CAPECITABINE [Suspect]
     Active Substance: CAPECITABINE
     Dosage: 3000 MG, QD
     Route: 065
     Dates: start: 20200108, end: 20200421
  44. CAPECITABINE [Suspect]
     Active Substance: CAPECITABINE
     Dosage: 2000 MG, QD (DAILY FOR 2 WEEKS THEN PAUSE FOR 1 WEEK)
     Route: 065
     Dates: start: 20201230, end: 20210203
  45. CAPECITABINE [Suspect]
     Active Substance: CAPECITABINE
     Dosage: 3500 MG, QD
     Route: 065
     Dates: start: 20210210, end: 20210224
  46. TRASTUZUMAB DERUXTECAN [Suspect]
     Active Substance: TRASTUZUMAB DERUXTECAN
     Indication: Product used for unknown indication
     Route: 065
     Dates: start: 20200814, end: 20201015
  47. TRASTUZUMAB DERUXTECAN [Suspect]
     Active Substance: TRASTUZUMAB DERUXTECAN
     Indication: HER2 positive breast cancer
     Route: 042
     Dates: start: 20170224, end: 20170224
  48. TUCATINIB [Suspect]
     Active Substance: TUCATINIB
     Indication: Breast cancer metastatic
     Route: 065
     Dates: start: 20201230, end: 20210210
  49. DOXORUBICIN HYDROCHLORIDE [Suspect]
     Active Substance: DOXORUBICIN HYDROCHLORIDE
     Indication: Breast cancer metastatic
     Route: 042
     Dates: start: 20210608
  50. DENOSUMAB [Suspect]
     Active Substance: DENOSUMAB
     Indication: Breast cancer metastatic
     Route: 042
     Dates: start: 20201230, end: 20210210
  51. KADCYLA [Suspect]
     Active Substance: ADO-TRASTUZUMAB EMTANSINE
     Indication: Breast cancer metastatic
     Dosage: 270 MILLIGRAM, Q3W
     Route: 042
     Dates: start: 20190306, end: 20190909
  52. KADCYLA [Suspect]
     Active Substance: ADO-TRASTUZUMAB EMTANSINE
     Route: 065
     Dates: start: 20190306, end: 20190909
  53. DOXYCYCLINE HYDROCHLORIDE [Suspect]
     Active Substance: DOXYCYCLINE HYDROCHLORIDE
     Indication: HER2 positive breast cancer
     Dosage: 104.4 MG, QD
     Route: 042
     Dates: start: 20210608, end: 20210608
  54. DOXYCYCLINE HYDROCHLORIDE [Suspect]
     Active Substance: DOXYCYCLINE HYDROCHLORIDE
     Indication: Breast cancer metastatic
     Route: 065
     Dates: start: 20210608, end: 20210608
  55. ENHERTU [Suspect]
     Active Substance: FAM-TRASTUZUMAB DERUXTECAN-NXKI
     Indication: Breast cancer metastatic
     Dosage: 624 MG, QD MOST RECENT DOSE PRIOR TO THE EVENTS: 10/AUG/2017
     Route: 042
     Dates: start: 20200814, end: 20201015
  56. NAVELBINE [Suspect]
     Active Substance: VINORELBINE TARTRATE
     Indication: Breast cancer metastatic
     Route: 042
     Dates: start: 20200422, end: 20200722
  57. NAVELBINE [Suspect]
     Active Substance: VINORELBINE TARTRATE
     Route: 042
     Dates: start: 20200722
  58. PERJETA [Suspect]
     Active Substance: PERTUZUMAB
     Indication: Breast cancer metastatic
     Dosage: 840 MG, QD
     Route: 042
     Dates: start: 20170224
  59. PERJETA [Suspect]
     Active Substance: PERTUZUMAB
     Dosage: 840 MG, QD
     Route: 042
     Dates: start: 20200422, end: 20200615
  60. PERJETA [Suspect]
     Active Substance: PERTUZUMAB
     Dosage: 840 MG, QD
     Route: 042
     Dates: start: 20210317, end: 20210428
  61. TAXOTERE [Suspect]
     Active Substance: DOCETAXEL
     Indication: Breast cancer metastatic
     Route: 042
     Dates: start: 20170519, end: 20170519
  62. TAXOTERE [Suspect]
     Active Substance: DOCETAXEL
     Dosage: 190 MG, ONCE EVERY 3 WK (190 MILLIGRAM, Q3WK MOSTRECENT DOSE PRIOR TO THE EVENTS: 09/JUN/2017)
     Route: 042
     Dates: start: 20170224, end: 20170317
  63. TAXOTERE [Suspect]
     Active Substance: DOCETAXEL
     Dosage: 540MG START DATE: 09/06/2017; END DATE: 30/06/2017, 175 MG START DATE: 10/04/2017; END DATE: 27/04/2
     Route: 042
     Dates: start: 20170609, end: 20170630
  64. TAXOTERE [Suspect]
     Active Substance: DOCETAXEL
     Dosage: 134.25 MG, Q3W
     Route: 042
     Dates: start: 20210317, end: 20210428
  65. TAXOTERE [Suspect]
     Active Substance: DOCETAXEL
     Route: 042
     Dates: start: 20170410, end: 20170427
  66. FASLODEX [Suspect]
     Active Substance: FULVESTRANT
     Indication: Breast cancer metastatic
     Route: 058
     Dates: start: 20171116, end: 20191001
  67. FASLODEX [Suspect]
     Active Substance: FULVESTRANT
     Route: 058
     Dates: start: 20171002, end: 20171115
  68. TUCATINIB [Suspect]
     Active Substance: TUCATINIB
     Indication: Breast cancer metastatic
     Route: 048
     Dates: start: 20201230, end: 20210210
  69. BLEOMYCIN [Suspect]
     Active Substance: BLEOMYCIN SULFATE
     Indication: Breast cancer metastatic
     Dosage: 26.85 MG, QD, DRUG WAS DISCONTINUED
     Route: 042
     Dates: start: 20200519, end: 20200519
  70. BLEOMYCIN [Suspect]
     Active Substance: BLEOMYCIN SULFATE
     Indication: Breast cancer metastatic
     Dosage: 1 DOSAGE FORM, QD, DRUG WAS DISCONTINUE
     Route: 042
     Dates: start: 20210105, end: 20210105
  71. BLEOMYCIN [Suspect]
     Active Substance: BLEOMYCIN SULFATE
     Dosage: 26.85 MG, QD, DRUG WAS DISCONTINUED AS PLANNED NUMBER OF CYCLES COMPLETED.
     Route: 042
  72. LEUKICHTAN [COD-LIVER OIL;ICHTHAMMOL] [Concomitant]
     Indication: Product used for unknown indication
     Route: 061
     Dates: start: 20200430, end: 20200515
  73. ZOFRAN [Concomitant]
     Active Substance: ONDANSETRON HYDROCHLORIDE
     Indication: Gastrointestinal disorder
     Route: 065
     Dates: start: 20200506
  74. ZOFRAN [Concomitant]
     Active Substance: ONDANSETRON HYDROCHLORIDE
     Indication: Product used for unknown indication
     Route: 065
     Dates: start: 20210612, end: 20210616
  75. ZOFRAN [Concomitant]
     Active Substance: ONDANSETRON HYDROCHLORIDE
     Route: 065
     Dates: start: 20210608, end: 20210610
  76. ZOFRAN [Concomitant]
     Active Substance: ONDANSETRON HYDROCHLORIDE
     Route: 065
     Dates: start: 20210611, end: 20210612
  77. OLIVE OIL [Concomitant]
     Active Substance: OLIVE OIL
     Indication: Paronychia
     Route: 065
     Dates: start: 20191002, end: 20200512
  78. CITRIC ACID MONOHYDRATE\POTASSIUM BICARBONATE\POTASSIUM CITRATE [Concomitant]
     Active Substance: CITRIC ACID MONOHYDRATE\POTASSIUM BICARBONATE\POTASSIUM CITRATE
     Indication: Product used for unknown indication
     Route: 065
     Dates: start: 20200427, end: 20200428
  79. CITRIC ACID MONOHYDRATE\POTASSIUM BICARBONATE\POTASSIUM CITRATE [Concomitant]
     Active Substance: CITRIC ACID MONOHYDRATE\POTASSIUM BICARBONATE\POTASSIUM CITRATE
     Route: 065
     Dates: start: 20200608, end: 20200609
  80. FUROSEMIDE [Concomitant]
     Active Substance: FUROSEMIDE
     Indication: Product used for unknown indication
     Route: 065
     Dates: start: 20170810, end: 20171213
  81. FUROSEMIDE [Concomitant]
     Active Substance: FUROSEMIDE
     Route: 065
     Dates: start: 20170611, end: 20170809
  82. FUROSEMIDE [Concomitant]
     Active Substance: FUROSEMIDE
     Route: 065
     Dates: start: 20170713, end: 20170809
  83. FUROSEMIDE [Concomitant]
     Active Substance: FUROSEMIDE
     Route: 065
     Dates: start: 20170810, end: 20190212
  84. EMEND [Concomitant]
     Active Substance: APREPITANT
     Indication: Product used for unknown indication
     Route: 065
     Dates: start: 20200428, end: 20200430
  85. CARBOXYMETHYLCELLULOSE SODIUM [Concomitant]
     Active Substance: CARBOXYMETHYLCELLULOSE SODIUM
     Indication: Product used for unknown indication
     Route: 065
     Dates: start: 20210105, end: 20210413
  86. BETAISODONA [Concomitant]
     Active Substance: POVIDONE-IODINE
     Indication: Skin fissures
     Route: 065
     Dates: start: 20200430, end: 20200515
  87. KCL [Concomitant]
     Active Substance: POTASSIUM CHLORIDE
     Indication: Product used for unknown indication
     Route: 065
     Dates: start: 20170429, end: 20190305
  88. EDOXABAN TOSYLATE [Concomitant]
     Active Substance: EDOXABAN TOSYLATE
     Indication: Product used for unknown indication
     Route: 065
     Dates: start: 20191120, end: 20200608
  89. EDOXABAN TOSYLATE [Concomitant]
     Active Substance: EDOXABAN TOSYLATE
     Route: 065
     Dates: start: 20200613, end: 20210611
  90. TAZOBACTAM [Concomitant]
     Active Substance: TAZOBACTAM
     Indication: Streptococcal sepsis
     Route: 065
     Dates: start: 20200423, end: 20200504
  91. TAZOBACTAM [Concomitant]
     Active Substance: TAZOBACTAM
     Indication: Product used for unknown indication
     Route: 065
     Dates: start: 20170708, end: 20170710
  92. FENTANYL [Concomitant]
     Active Substance: FENTANYL
     Indication: Product used for unknown indication
     Route: 062
     Dates: start: 20200515
  93. PANTOPRAZOLE [Concomitant]
     Active Substance: PANTOPRAZOLE
     Indication: Gastrointestinal disorder
     Route: 048
     Dates: start: 20170722, end: 20180327
  94. PANTOPRAZOLE [Concomitant]
     Active Substance: PANTOPRAZOLE
     Indication: Product used for unknown indication
     Route: 048
     Dates: start: 20200506, end: 20200519
  95. PANTOPRAZOLE [Concomitant]
     Active Substance: PANTOPRAZOLE
     Dosage: 40 MG, QD
     Route: 048
     Dates: start: 20170721, end: 20180327
  96. PANTOPRAZOLE [Concomitant]
     Active Substance: PANTOPRAZOLE
     Route: 065
     Dates: start: 20170722, end: 20180327
  97. PANTOPRAZOLE [Concomitant]
     Active Substance: PANTOPRAZOLE
     Route: 065
     Dates: start: 20200506, end: 20200519
  98. PANTOPRAZOLE [Concomitant]
     Active Substance: PANTOPRAZOLE
     Route: 048
     Dates: start: 20210317, end: 20210606
  99. PANTOPRAZOLE [Concomitant]
     Active Substance: PANTOPRAZOLE
     Route: 048
     Dates: start: 20210608, end: 20210610
  100. PANTOPRAZOLE [Concomitant]
     Active Substance: PANTOPRAZOLE
     Route: 048
     Dates: start: 20210618, end: 20210623
  101. LOVENOX [Concomitant]
     Active Substance: ENOXAPARIN SODIUM
     Indication: Product used for unknown indication
     Dosage: 40 MG, QD
     Route: 065
     Dates: start: 20170224, end: 20171130
  102. PREGABALIN [Concomitant]
     Active Substance: PREGABALIN
     Indication: Product used for unknown indication
     Route: 065
     Dates: start: 20190821, end: 20210616
  103. PREGABALIN [Concomitant]
     Active Substance: PREGABALIN
     Dosage: 25 MG, QD
     Route: 065
     Dates: start: 20170428, end: 20180123
  104. LEVOFLOXACIN [Concomitant]
     Active Substance: LEVOFLOXACIN
     Indication: Product used for unknown indication
     Route: 065
     Dates: start: 20200506, end: 20200512
  105. DEXAMETHASONE [Concomitant]
     Active Substance: DEXAMETHASONE
     Indication: Brain oedema
     Route: 048
     Dates: start: 20171004, end: 20171006
  106. DEXAMETHASONE [Concomitant]
     Active Substance: DEXAMETHASONE
     Indication: Product used for unknown indication
     Route: 065
     Dates: start: 20171007, end: 20171008
  107. DEXAMETHASONE [Concomitant]
     Active Substance: DEXAMETHASONE
     Route: 065
     Dates: start: 20200422, end: 20200505
  108. DEXAMETHASONE [Concomitant]
     Active Substance: DEXAMETHASONE
     Route: 065
     Dates: start: 20170104, end: 20170106
  109. DEXAMETHASONE [Concomitant]
     Active Substance: DEXAMETHASONE
     Route: 065
     Dates: start: 20170107, end: 20170108
  110. DEXAMETHASONE [Concomitant]
     Active Substance: DEXAMETHASONE
     Route: 065
     Dates: start: 20200609, end: 20200609
  111. DEXAMETHASONE [Concomitant]
     Active Substance: DEXAMETHASONE
     Route: 065
     Dates: start: 20210614, end: 20210623
  112. EUTHYROX [Concomitant]
     Active Substance: LEVOTHYROXINE SODIUM
     Indication: Product used for unknown indication
     Route: 065
     Dates: start: 20170303, end: 20210615
  113. NOVALGIN (METAMIZOLE SODIUM) [Concomitant]
     Active Substance: METAMIZOLE SODIUM
     Indication: Product used for unknown indication
     Route: 065
     Dates: start: 20170329, end: 20180807
  114. NOVALGIN (METAMIZOLE SODIUM) [Concomitant]
     Active Substance: METAMIZOLE SODIUM
     Route: 065
     Dates: start: 20210608, end: 20210612
  115. NOVALGIN (METAMIZOLE SODIUM) [Concomitant]
     Active Substance: METAMIZOLE SODIUM
     Route: 065
     Dates: start: 20210618, end: 20210618
  116. XGEVA [Concomitant]
     Active Substance: DENOSUMAB
     Indication: Breast cancer metastatic
     Route: 065
     Dates: start: 20170202
  117. NERIFORTE [Concomitant]
     Indication: Skin fissures
     Route: 061
     Dates: start: 20200430, end: 20200515
  118. METOCLOPRAMIDE HYDROCHLORIDE [Concomitant]
     Active Substance: METOCLOPRAMIDE HYDROCHLORIDE
     Indication: Gastrointestinal disorder
     Route: 065
     Dates: start: 20200506, end: 20201212
  119. METOCLOPRAMIDE HYDROCHLORIDE [Concomitant]
     Active Substance: METOCLOPRAMIDE HYDROCHLORIDE
     Route: 065
     Dates: start: 20210608, end: 20210610
  120. METOCLOPRAMIDE HYDROCHLORIDE [Concomitant]
     Active Substance: METOCLOPRAMIDE HYDROCHLORIDE
     Route: 065
     Dates: start: 20210611, end: 20210623
  121. CALCIUM CARBONATE\CHOLECALCIFEROL [Concomitant]
     Active Substance: CALCIUM CARBONATE\CHOLECALCIFEROL
     Indication: Product used for unknown indication
     Route: 065
     Dates: start: 20170203
  122. CALCIUM CARBONATE\CHOLECALCIFEROL [Concomitant]
     Active Substance: CALCIUM CARBONATE\CHOLECALCIFEROL
     Route: 065
     Dates: start: 20170203, end: 20210612
  123. RETINOL [Concomitant]
     Active Substance: RETINOL
     Indication: Product used for unknown indication
     Route: 048
     Dates: start: 20170329, end: 20210615
  124. OLEOVIT [BENZALKONIUM CHLORIDE;DEXPANTHENOL;RETINOL PALMITATE] [Concomitant]
     Indication: Product used for unknown indication
     Route: 065
     Dates: start: 20170329
  125. SILICON [Concomitant]
     Active Substance: SILICON
     Indication: Skin fissures
     Route: 065
     Dates: start: 20200521, end: 20200602
  126. PARACODIN [DIHYDROCODEINE] [Concomitant]
     Indication: Cough
     Route: 065
     Dates: start: 20210428, end: 20210615
  127. PARACODIN [DIHYDROCODEINE] [Concomitant]
     Route: 048
     Dates: start: 20170708, end: 20170709
  128. PARACODIN [DIHYDROCODEINE] [Concomitant]
     Route: 065
     Dates: start: 20210608, end: 20210610
  129. LEVOFLOXACIN [Concomitant]
     Active Substance: LEVOFLOXACIN
     Indication: Product used for unknown indication
     Route: 065
  130. FILGRASTIM [Concomitant]
     Active Substance: FILGRASTIM
     Indication: Product used for unknown indication
     Route: 065
     Dates: start: 20170704, end: 20170708
  131. FILGRASTIM [Concomitant]
     Active Substance: FILGRASTIM
     Route: 065
     Dates: start: 20200701
  132. XICLAV [CEFUROXIME AXETIL;CLAVULANATE POTASSIUM] [Concomitant]
     Indication: Product used for unknown indication
     Route: 065
     Dates: start: 20181218, end: 20181222
  133. TRAZODONE HYDROCHLORIDE [Concomitant]
     Active Substance: TRAZODONE HYDROCHLORIDE
     Indication: Product used for unknown indication
     Route: 065
     Dates: start: 20190731, end: 20190910
  134. LORAZEPAM [Concomitant]
     Active Substance: LORAZEPAM
     Indication: Restlessness
     Route: 065
     Dates: start: 20210611, end: 20210621
  135. LORAZEPAM [Concomitant]
     Active Substance: LORAZEPAM
     Indication: Product used for unknown indication
     Route: 065
     Dates: start: 20210618, end: 20210623
  136. SODIUM CHLORIDE [Concomitant]
     Active Substance: SODIUM CHLORIDE
     Indication: Product used for unknown indication
     Route: 065
  137. ONDANSETRON HYDROCHLORIDE [Concomitant]
     Active Substance: ONDANSETRON HYDROCHLORIDE
     Indication: Gastrointestinal disorder
     Route: 065
     Dates: start: 20170329, end: 20170809
  138. ONDANSETRON HYDROCHLORIDE [Concomitant]
     Active Substance: ONDANSETRON HYDROCHLORIDE
     Route: 065
     Dates: start: 20200506
  139. ONDANSETRON HYDROCHLORIDE [Concomitant]
     Active Substance: ONDANSETRON HYDROCHLORIDE
     Route: 065
     Dates: start: 20210611, end: 20210616
  140. MOTRIM [SULFAMETHOXAZOLE;TRIMETHOPRIM] [Concomitant]
     Indication: Product used for unknown indication
     Route: 065
     Dates: start: 20190619, end: 20190623
  141. POLYETHYLENE GLYCOL 3350\POTASSIUM CHLORIDE\SODIUM BICARBONATE\SODIUM [Concomitant]
     Active Substance: POLYETHYLENE GLYCOL 3350\POTASSIUM CHLORIDE\SODIUM BICARBONATE\SODIUM CHLORIDE
     Indication: Product used for unknown indication
     Route: 065
     Dates: start: 20210608, end: 20210616
  142. POLYETHYLENE GLYCOL 3350\POTASSIUM CHLORIDE\SODIUM BICARBONATE\SODIUM [Concomitant]
     Active Substance: POLYETHYLENE GLYCOL 3350\POTASSIUM CHLORIDE\SODIUM BICARBONATE\SODIUM CHLORIDE
     Route: 065
     Dates: start: 20170709, end: 20170709
  143. ACETAMINOPHEN [Concomitant]
     Active Substance: ACETAMINOPHEN
     Indication: Pseudomonal sepsis
     Route: 065
     Dates: start: 20200610, end: 20200616
  144. ACETAMINOPHEN [Concomitant]
     Active Substance: ACETAMINOPHEN
     Indication: Product used for unknown indication
     Route: 065
     Dates: start: 20210622, end: 20210622
  145. LIDOCAINE [Concomitant]
     Active Substance: LIDOCAINE
     Indication: Product used for unknown indication
     Route: 065
     Dates: start: 20200610, end: 20200610
  146. LASIX [Concomitant]
     Active Substance: FUROSEMIDE
     Indication: Product used for unknown indication
     Route: 065
     Dates: start: 20170611, end: 20170809
  147. LASIX [Concomitant]
     Active Substance: FUROSEMIDE
     Route: 065
     Dates: start: 20170713, end: 20170809
  148. LASIX [Concomitant]
     Active Substance: FUROSEMIDE
     Route: 065
     Dates: start: 20170810, end: 20190212
  149. LASIX [Concomitant]
     Active Substance: FUROSEMIDE
     Route: 065
     Dates: start: 20170810, end: 20171213
  150. LASIX [Concomitant]
     Active Substance: FUROSEMIDE
     Route: 065
     Dates: start: 20240810, end: 20240810
  151. BUTYLSCOPOLAMINE BROMIDE [Concomitant]
     Active Substance: BUTYLSCOPOLAMINE BROMIDE
     Indication: Gastrointestinal disorder
     Route: 065
     Dates: start: 20210618, end: 20210618
  152. HYALURONATE SODIUM [Concomitant]
     Active Substance: HYALURONATE SODIUM
     Indication: Product used for unknown indication
     Route: 065
  153. ELOMEL [Concomitant]
     Indication: Product used for unknown indication
     Route: 065
  154. CURAM [AMOXICILLIN TRIHYDRATE;CLAVULANATE POTASSIUM] [Concomitant]
     Indication: Product used for unknown indication
     Route: 048
     Dates: start: 20170711, end: 20170713
  155. CURAM [AMOXICILLIN TRIHYDRATE;CLAVULANATE POTASSIUM] [Concomitant]
     Route: 065
     Dates: start: 20200604, end: 20200605
  156. CEFEPIME [Concomitant]
     Active Substance: CEFEPIME HYDROCHLORIDE
     Indication: Product used for unknown indication
     Route: 065
  157. AUGMENTIN [Concomitant]
     Active Substance: AMOXICILLIN\CLAVULANATE POTASSIUM
     Indication: Product used for unknown indication
     Route: 065
     Dates: start: 20170710, end: 20170710
  158. AMPHO-MORONAL [Concomitant]
     Active Substance: AMPHOTERICIN B
     Indication: Product used for unknown indication
     Route: 065
  159. AMOXICLAV [AMOXICILLIN TRIHYDRATE;CLAVULANATE POTASSIUM] [Concomitant]
     Indication: Product used for unknown indication
     Route: 048
     Dates: start: 20181218, end: 20181222
  160. AMOXICILLIN [Concomitant]
     Active Substance: AMOXICILLIN
     Indication: Product used for unknown indication
     Route: 065
  161. ACTIMARIS [SEA WATER;SODIUM HYPOCHLORITE] [Concomitant]
     Indication: Product used for unknown indication
     Route: 065
     Dates: start: 20200108, end: 20200128
  162. SODIUM CACODYLATE [Concomitant]
     Active Substance: SODIUM CACODYLATE
     Indication: Dyspnoea
     Route: 065
     Dates: start: 20210521, end: 20210616
  163. SODIUM CACODYLATE [Concomitant]
     Active Substance: SODIUM CACODYLATE
     Indication: Dyspnoea
     Route: 065
     Dates: start: 20210616, end: 20210623
  164. SODIUM CACODYLATE [Concomitant]
     Active Substance: SODIUM CACODYLATE
     Indication: Dyspnoea
  165. ACECLOFENAC AND PARACETAMOL [Concomitant]
     Indication: Product used for unknown indication
     Route: 065
     Dates: start: 20210622, end: 20210622
  166. ALPRAZOLAM [Concomitant]
     Active Substance: ALPRAZOLAM
     Indication: Product used for unknown indication
     Route: 065
  167. BUTYLSCOPOLAMINE BROMIDE [Concomitant]
     Active Substance: BUTYLSCOPOLAMINE BROMIDE
     Indication: Gastrointestinal disorder
     Route: 065
     Dates: start: 20210618, end: 20210618
  168. CAL C VITA [Concomitant]
     Indication: Product used for unknown indication
     Route: 065
     Dates: start: 20170203, end: 20210612
  169. BETAMETHASONE DIPROPIONATE [Concomitant]
     Active Substance: BETAMETHASONE DIPROPIONATE
     Indication: Eczema
     Route: 001
     Dates: start: 20191122, end: 20191215
  170. DRONABINOL [Concomitant]
     Active Substance: DRONABINOL
     Indication: Gastrointestinal disorder
     Route: 065
     Dates: start: 20210608, end: 20210612
  171. HALSET [CETYLPYRIDINIUM CHLORIDE] [Concomitant]
     Indication: Cough
     Route: 065
     Dates: start: 20210611, end: 20210615
  172. HYDROMORPHONE HYDROCHLORIDE [Concomitant]
     Active Substance: HYDROMORPHONE HYDROCHLORIDE
     Indication: Product used for unknown indication
     Route: 065
     Dates: start: 20210611, end: 20210615
  173. LACTULOSE [Concomitant]
     Active Substance: LACTULOSE
     Indication: Product used for unknown indication
     Route: 065
  174. MORPHINE SULFATE [Concomitant]
     Active Substance: MORPHINE SULFATE
     Indication: Dyspnoea
     Route: 065
     Dates: start: 20210521, end: 20210616
  175. MORPHINE SULFATE [Concomitant]
     Active Substance: MORPHINE SULFATE
     Route: 065
     Dates: start: 20210616, end: 20210623
  176. PONVERIDOL [Concomitant]
     Indication: Product used for unknown indication
     Route: 065
     Dates: start: 20210618, end: 20210623
  177. SCOTTOPECT [Concomitant]
     Indication: Cough
     Route: 065
     Dates: start: 20210611, end: 20210613
  178. MORPHINE HYDROCHLORIDE [Concomitant]
     Active Substance: MORPHINE HYDROCHLORIDE
     Indication: Dyspnoea
     Route: 065
     Dates: start: 20210521, end: 20210616
  179. MORPHINE HYDROCHLORIDE [Concomitant]
     Active Substance: MORPHINE HYDROCHLORIDE
     Route: 065
     Dates: start: 20210616, end: 20210623
  180. ASCORBIC ACID [Concomitant]
     Active Substance: ASCORBIC ACID
     Indication: Gastrointestinal disorder
     Route: 065
     Dates: start: 20210611, end: 20210614
  181. ALPRAZOLAM [Concomitant]
     Active Substance: ALPRAZOLAM
     Indication: Restlessness
     Route: 065
     Dates: start: 20210613, end: 20210615
  182. DROPERIDOL [Concomitant]
     Active Substance: DROPERIDOL
     Indication: Gastrointestinal disorder
     Route: 065
     Dates: start: 20210612, end: 20210617
  183. ZIEXTENZO [Concomitant]
     Active Substance: PEGFILGRASTIM-BMEZ
     Indication: Product used for unknown indication
     Route: 065
     Dates: start: 20210610, end: 20210610
  184. DROPERIDOL [Suspect]
     Active Substance: DROPERIDOL
     Indication: Restlessness
     Route: 065
     Dates: start: 20210618, end: 20210623
  185. DROPERIDOL [Suspect]
     Active Substance: DROPERIDOL
     Route: 065
     Dates: start: 20210612, end: 20210617
  186. BETAMETHASONE DIPROPIONATE [Concomitant]
     Active Substance: BETAMETHASONE DIPROPIONATE
     Indication: Eczema
     Route: 061
     Dates: start: 20191122, end: 20191215

REACTIONS (29)
  - Pseudomonal sepsis [Recovered/Resolved]
  - Streptococcal sepsis [Recovered/Resolved]
  - Metastases to lymph nodes [Not Recovered/Not Resolved]
  - Metastases to central nervous system [Not Recovered/Not Resolved]
  - Brain oedema [Not Recovered/Not Resolved]
  - Sepsis [Recovered/Resolved]
  - Vascular device infection [Recovered/Resolved]
  - Metastases to lymph nodes [Not Recovered/Not Resolved]
  - Metastases to central nervous system [Not Recovered/Not Resolved]
  - C-reactive protein increased [Not Recovered/Not Resolved]
  - Restlessness [Unknown]
  - Vascular device infection [Recovered/Resolved]
  - Nausea [Recovered/Resolved]
  - Back pain [Recovered/Resolved]
  - Candida infection [Recovered/Resolved]
  - Fatigue [Recovered/Resolved]
  - Varicose vein [Not Recovered/Not Resolved]
  - Varicose vein [Not Recovered/Not Resolved]
  - Nasal mucosal disorder [Recovered/Resolved]
  - Skin fissures [Recovered/Resolved]
  - C-reactive protein increased [Not Recovered/Not Resolved]
  - Nail bed inflammation [Not Recovered/Not Resolved]
  - Skin fissures [Recovered/Resolved]
  - Eczema [Not Recovered/Not Resolved]
  - Restlessness [Not Recovered/Not Resolved]
  - Vomiting [Recovered/Resolved]
  - Pleural effusion [Recovered/Resolved]
  - Paronychia [Recovered/Resolved]
  - Off label use [Unknown]

NARRATIVE: CASE EVENT DATE: 20170921
